FAERS Safety Report 9767788 (Version 1)
Quarter: 2013Q4

REPORT INFORMATION
  Report Type: Spontaneous
  Country: HU (occurrence: None)
  Receive Date: 20131213
  Receipt Date: 20131213
  Transmission Date: 20140711
  Serious: Yes (Other)
  Sender: FDA-Public Use
  Company Number: IPC201312-000500

PATIENT
  Age: 80 Year
  Sex: Male

DRUGS (14)
  1. METOPROLOL TARTRATE [Suspect]
     Dosage: UNK
  2. BISMUTH [Suspect]
     Dosage: UNK
  3. TIOTROPIUM [Suspect]
     Dosage: UNK
  4. FAMOTIDINE [Suspect]
     Dosage: UNK
  5. ACETYLSALICYLIC ACID (ACETYLSALICYLIC ACID) (ACETASALICYLIC ACID) [Suspect]
     Dosage: UNK
  6. CALCIUM (CALCIUM) (CALCIUM) [Suspect]
  7. ROSUVASTATIN [Suspect]
     Dosage: 500 MICROGRAM / DAY, ORAL
     Route: 048
  8. FLUOXETINE (FLUOXETINE) (FLUOXETINE) [Suspect]
     Dosage: UNK
  9. CYANOCOBALAMIN [Suspect]
  10. DIGOXIN [Suspect]
     Dosage: 500 MICROGRAM / DAY FOR 2 MONTHS, ORAL
  11. WARFARIN [Suspect]
  12. FLUTICASONE (FLUTICASONE) (FLUTICASONE) [Suspect]
  13. MAGNESIUM [Suspect]
  14. ROFLUMILAST [Suspect]

REACTIONS (3)
  - Melaena [None]
  - Nausea [None]
  - Dizziness [None]
